FAERS Safety Report 9861904 (Version 1)
Quarter: 2014Q1

REPORT INFORMATION
  Report Type: Spontaneous
  Country: FR (occurrence: FR)
  Receive Date: 20140203
  Receipt Date: 20140203
  Transmission Date: 20141002
  Serious: Yes (Hospitalization)
  Sender: FDA-Public Use
  Company Number: FR-JNJFOC-20140117865

PATIENT
  Age: 51 Year
  Sex: Female

DRUGS (6)
  1. XARELTO [Suspect]
     Indication: DEEP VEIN THROMBOSIS
     Route: 048
     Dates: start: 20131117, end: 20131126
  2. BETAHISTINE [Concomitant]
     Route: 065
  3. LUMIGAN [Concomitant]
     Dosage: 1 DROP IN BOTH EYES IN THE EVENING
     Route: 065
  4. LEVOTHYROX [Concomitant]
     Dosage: 1 PER DAY(UNITS UNSPECIFIED)
     Route: 065
  5. VITAMIN B12 [Concomitant]
     Route: 065
  6. TANGANIL [Concomitant]
     Dosage: 2 PER DAY(UNITS UNSPECIFIED)
     Route: 065

REACTIONS (2)
  - Venous thrombosis [Recovered/Resolved]
  - Drug ineffective [Unknown]
